FAERS Safety Report 17722894 (Version 1)
Quarter: 2020Q2

REPORT INFORMATION
  Report Type: Spontaneous
  Country: CA (occurrence: CA)
  Receive Date: 20200429
  Receipt Date: 20200429
  Transmission Date: 20200714
  Serious: Yes (Hospitalization)
  Sender: FDA-Public Use
  Company Number: CA-TEVA-2020-CA-1230598

PATIENT
  Age: 78 Year
  Sex: Male

DRUGS (6)
  1. ADVAIR HFA [Suspect]
     Active Substance: FLUTICASONE PROPIONATE\SALMETEROL XINAFOATE
     Indication: ASTHMA
     Route: 065
  2. NUCALA [Suspect]
     Active Substance: MEPOLIZUMAB
     Indication: ASTHMA
     Route: 042
  3. SALBUTAMOL [Suspect]
     Active Substance: ALBUTEROL
     Indication: ASTHMA
     Route: 065
  4. AMLODIPINE BESILATE [Suspect]
     Active Substance: AMLODIPINE BESYLATE
     Indication: PRODUCT USED FOR UNKNOWN INDICATION
     Route: 065
  5. UMECLIDINIUM BROMIDE [Suspect]
     Active Substance: UMECLIDINIUM BROMIDE
     Indication: ASTHMA
     Route: 055
  6. FLUTICASONE FUROATE/VILANTEROL TRIFENATATE [Suspect]
     Active Substance: FLUTICASONE FUROATE\VILANTEROL TRIFENATATE
     Indication: ASTHMA
     Route: 055

REACTIONS (6)
  - Blood immunoglobulin E increased [Recovered/Resolved]
  - Asthma [Recovered/Resolved]
  - Obstructive airways disorder [Recovered/Resolved]
  - Blood test abnormal [Recovered/Resolved]
  - Weight decreased [Recovered/Resolved]
  - Therapeutic product effect incomplete [Recovered/Resolved]
